FAERS Safety Report 25083349 (Version 1)
Quarter: 2025Q1

REPORT INFORMATION
  Report Type: Spontaneous
  Country: US (occurrence: None)
  Receive Date: 20250314
  Receipt Date: 20250314
  Transmission Date: 20250409
  Serious: No
  Sender: FDA-CTU
  Company Number: None

PATIENT
  Age: 60 Year
  Sex: Female

DRUGS (1)
  1. ACTEMRA [Suspect]
     Active Substance: TOCILIZUMAB
     Indication: Rheumatoid arthritis
     Dosage: FREQUENCY : EVERY OTHER WEEK;?
     Route: 058
     Dates: start: 20240601

REACTIONS (5)
  - Injection site pain [None]
  - Injection site pain [None]
  - Injection site swelling [None]
  - Urticaria [None]
  - Injection site pruritus [None]

NARRATIVE: CASE EVENT DATE: 20250215
